FAERS Safety Report 5361060-7 (Version None)
Quarter: 2007Q2

REPORT INFORMATION
  Report Type: 
  Country: None (occurrence: None)
  Receive Date: 20070612
  Receipt Date: 20070529
  Transmission Date: 20071010
  Serious: Yes (Hospitalization)
  Sender: FDA-Public Use
  Company Number: 2007322773

PATIENT
  Age: 38 Year
  Sex: Female

DRUGS (2)
  1. DIPHENHYDRAMINE HCL [Suspect]
     Dosage: 400 MG, ORAL
     Route: 048
  2. PAROXETINE [Suspect]
     Dosage: 1.8 GRAM, ORAL
     Route: 048

REACTIONS (19)
  - AGITATION [None]
  - BLOOD ALCOHOL INCREASED [None]
  - CONFUSIONAL STATE [None]
  - ELECTROCARDIOGRAM QT PROLONGED [None]
  - FLUSHING [None]
  - GRAND MAL CONVULSION [None]
  - HYPERHIDROSIS [None]
  - HYPERREFLEXIA [None]
  - HYPERTENSION [None]
  - HYPERTONIA [None]
  - MULTIPLE DRUG OVERDOSE [None]
  - MYDRIASIS [None]
  - OBSTRUCTIVE AIRWAYS DISORDER [None]
  - OXYGEN SATURATION DECREASED [None]
  - PYREXIA [None]
  - RESPIRATORY RATE INCREASED [None]
  - SOMNOLENCE [None]
  - TACHYCARDIA [None]
  - VOMITING [None]
